FAERS Safety Report 8131456-9 (Version None)
Quarter: 2012Q1

REPORT INFORMATION
  Report Type: 
  Country: None (occurrence: None)
  Receive Date: 20120213
  Receipt Date: 20120209
  Transmission Date: 20120608
  Serious: Yes (Other)
  Sender: FDA-Public Use
  Company Number: US-AMGEN-USASP2012008900

PATIENT
  Age: 77 Year
  Sex: Female

DRUGS (7)
  1. PROLIA [Suspect]
     Indication: OSTEOPOROSIS POSTMENOPAUSAL
     Dosage: 60 MG, Q6MO
     Dates: start: 20110701
  2. CARDIZEM [Concomitant]
     Dosage: 180 MG, UNK
  3. SIMVASTATIN [Concomitant]
     Dosage: UNK
  4. PREDNISONE TAB [Concomitant]
  5. ASPIRIN [Concomitant]
  6. CODEINE SULFATE [Concomitant]
  7. CALCIUM [Concomitant]
     Dosage: UNK UNK, BID

REACTIONS (5)
  - HEART RATE INCREASED [None]
  - ARTHRALGIA [None]
  - DYSPNOEA [None]
  - JOINT SWELLING [None]
  - INCORRECT ROUTE OF DRUG ADMINISTRATION [None]
